FAERS Safety Report 15575845 (Version 1)
Quarter: 2018Q4

REPORT INFORMATION
  Report Type: Spontaneous
  Country: US (occurrence: US)
  Receive Date: 20181101
  Receipt Date: 20181101
  Transmission Date: 20190205
  Serious: Yes (Other)
  Sender: FDA-Public Use
  Company Number: US-SA-2018SA298939

PATIENT
  Sex: Female

DRUGS (15)
  1. MOBIC [Concomitant]
     Active Substance: MELOXICAM
  2. LEXAPRO [Concomitant]
     Active Substance: ESCITALOPRAM OXALATE
  3. LIPITOR [Concomitant]
     Active Substance: ATORVASTATIN CALCIUM
  4. MULTIVITAMIN [ASCORBIC ACID;CALCIUM PANTOTHENATE;COLECALCIFEROL;CYANOC [Concomitant]
  5. VITAMIN B12 [COBAMAMIDE] [Concomitant]
  6. LISINOPRIL. [Concomitant]
     Active Substance: LISINOPRIL
  7. TOPROL XL [Concomitant]
     Active Substance: METOPROLOL SUCCINATE
  8. VITAMIN D [Concomitant]
     Active Substance: CHOLECALCIFEROL
  9. ASPIRIN 81 [Concomitant]
     Active Substance: ASPIRIN
  10. IBUPROFEN. [Concomitant]
     Active Substance: IBUPROFEN
  11. BACLOFEN. [Concomitant]
     Active Substance: BACLOFEN
  12. KEPPRA [Concomitant]
     Active Substance: LEVETIRACETAM
  13. NEURONTIN [Concomitant]
     Active Substance: GABAPENTIN
  14. AUBAGIO [Suspect]
     Active Substance: TERIFLUNOMIDE
     Indication: PRODUCT USED FOR UNKNOWN INDICATION
     Dosage: 7 MG, QD
     Route: 048
     Dates: start: 201809
  15. NORVASC [Concomitant]
     Active Substance: AMLODIPINE BESYLATE

REACTIONS (4)
  - Rash [Not Recovered/Not Resolved]
  - Haemorrhage [Not Recovered/Not Resolved]
  - Skin discolouration [Not Recovered/Not Resolved]
  - Skin abrasion [Not Recovered/Not Resolved]
